FAERS Safety Report 7280979-3 (Version None)
Quarter: 2011Q1

REPORT INFORMATION
  Report Type: 
  Country: None (occurrence: None)
  Receive Date: 20110131
  Receipt Date: 20110120
  Transmission Date: 20110831
  Serious: Yes (Hospitalization, Other)
  Sender: FDA-Public Use
  Company Number: JPI-P-013562

PATIENT
  Age: 46 Year
  Sex: Female
  Weight: 85.7298 kg

DRUGS (1)
  1. XYREM [Suspect]
     Indication: INSOMNIA
     Dosage: 2 IN 1 D, ORAL; 9 GM (4/5 GM, 2 IN 1 D), ORAL
     Route: 048
     Dates: start: 20090701

REACTIONS (3)
  - CELLULITIS [None]
  - RENAL IMPAIRMENT [None]
  - INFECTED SEBACEOUS CYST [None]
